FAERS Safety Report 25177523 (Version 1)
Quarter: 2025Q2

REPORT INFORMATION
  Report Type: Spontaneous
  Country: GB (occurrence: GB)
  Receive Date: 20250409
  Receipt Date: 20250409
  Transmission Date: 20250717
  Serious: Yes (Disabling, Other)
  Sender: HIKMA
  Company Number: None

PATIENT
  Age: 73 Year
  Sex: Female
  Weight: 69 kg

DRUGS (1)
  1. ROCURONIUM BROMIDE [Suspect]
     Active Substance: ROCURONIUM BROMIDE
     Indication: Product used for unknown indication
     Route: 065
     Dates: start: 20241216

REACTIONS (4)
  - Medication error [Unknown]
  - Wrong drug [Recovering/Resolving]
  - Dyspnoea [Unknown]
  - Mental disorder [Unknown]

NARRATIVE: CASE EVENT DATE: 20241216
